FAERS Safety Report 13084783 (Version 1)
Quarter: 2017Q1

REPORT INFORMATION
  Report Type: Spontaneous
  Country: US (occurrence: US)
  Receive Date: 20170104
  Receipt Date: 20170104
  Transmission Date: 20170428
  Serious: No
  Sender: FDA-Public Use
  Company Number: None

PATIENT
  Age: 60 Year
  Sex: Male

DRUGS (1)
  1. HARVONI [Suspect]
     Active Substance: LEDIPASVIR\SOFOSBUVIR
     Indication: CHRONIC HEPATITIS C
     Dosage: TAKE 1 TABLET; DAILY; BY MOUTH
     Route: 048
     Dates: start: 20161117

REACTIONS (3)
  - Neck pain [None]
  - Therapy non-responder [None]
  - Movement disorder [None]

NARRATIVE: CASE EVENT DATE: 20161226
